FAERS Safety Report 8476717-9 (Version None)
Quarter: 2012Q2

REPORT INFORMATION
  Report Type: 
  Country: None (occurrence: None)
  Receive Date: 20120628
  Receipt Date: 20120623
  Transmission Date: 20120825
  Serious: Yes (Hospitalization, Other)
  Sender: FDA-Public Use
  Company Number: PHHY2012BR055184

PATIENT
  Sex: Female

DRUGS (6)
  1. SIMVASTATIN [Suspect]
  2. ASPIRIN [Suspect]
  3. AMLODIPINE [Suspect]
     Indication: BLOOD PRESSURE
     Dosage: 1 DF (160/5 MG), A DAY
     Route: 048
  4. LOSARTAN POTASSIUM [Suspect]
  5. METFORMIN HCL [Suspect]
  6. LASIX [Suspect]

REACTIONS (3)
  - CEREBROVASCULAR ACCIDENT [None]
  - APHASIA [None]
  - ABASIA [None]
